FAERS Safety Report 6807062-2 (Version None)
Quarter: 2010Q2

REPORT INFORMATION
  Report Type: 
  Country: None (occurrence: None)
  Receive Date: 20100629
  Receipt Date: 20080627
  Transmission Date: 20101027
  Serious: Yes (Other)
  Sender: FDA-Public Use
  Company Number: US-PFIZER INC-2008054147

PATIENT
  Sex: Male
  Weight: 84.09 kg

DRUGS (1)
  1. VIAGRA [Suspect]
     Indication: ERECTILE DYSFUNCTION
     Dates: start: 20080626

REACTIONS (4)
  - DEPRESSED MOOD [None]
  - DIARRHOEA [None]
  - HEART RATE IRREGULAR [None]
  - SYNCOPE [None]
